FAERS Safety Report 18517319 (Version 1)
Quarter: 2020Q4

REPORT INFORMATION
  Report Type: Spontaneous
  Country: IT (occurrence: IT)
  Receive Date: 20201118
  Receipt Date: 20201118
  Transmission Date: 20210114
  Serious: Yes (Other)
  Sender: FDA-Public Use
  Company Number: IT-ASTRAZENECA-2020SF51087

PATIENT
  Age: 47 Year
  Sex: Male

DRUGS (2)
  1. DURVALUMAB. [Suspect]
     Active Substance: DURVALUMAB
     Indication: DRUG WITHDRAWAL MAINTENANCE THERAPY
     Route: 042
     Dates: start: 20190528
  2. DURVALUMAB. [Suspect]
     Active Substance: DURVALUMAB
     Indication: DRUG WITHDRAWAL MAINTENANCE THERAPY
     Route: 042
     Dates: end: 20200514

REACTIONS (1)
  - Subarachnoid haemorrhage [Recovered/Resolved]

NARRATIVE: CASE EVENT DATE: 20190812
